FAERS Safety Report 20808026 (Version 1)
Quarter: 2022Q2

REPORT INFORMATION
  Report Type: Spontaneous
  Country: GB (occurrence: GB)
  Receive Date: 20220510
  Receipt Date: 20220510
  Transmission Date: 20220721
  Serious: Yes (Disabling, Other)
  Sender: FDA-Public Use
  Company Number: None

PATIENT

DRUGS (5)
  1. GABAPENTIN [Suspect]
     Active Substance: GABAPENTIN
     Indication: Back pain
     Dosage: WAS 900 NOW DOWN TO 100.; 900IU
     Route: 065
  2. OXYCODONE [Concomitant]
     Active Substance: OXYCODONE
  3. FENTANYL [Concomitant]
     Active Substance: FENTANYL
  4. MORPHINE [Concomitant]
     Active Substance: MORPHINE
  5. DIAZEPAM [Concomitant]
     Active Substance: DIAZEPAM

REACTIONS (1)
  - Memory impairment [Not Recovered/Not Resolved]
